FAERS Safety Report 18601045 (Version 1)
Quarter: 2020Q4

REPORT INFORMATION
  Report Type: Spontaneous
  Country: US (occurrence: US)
  Receive Date: 20201210
  Receipt Date: 20201210
  Transmission Date: 20210114
  Serious: Yes (Death, Other)
  Sender: FDA-Public Use
  Company Number: US-PURDUE-USA-2020-0175669

PATIENT
  Sex: Male

DRUGS (1)
  1. OXYCONTIN [Suspect]
     Active Substance: OXYCODONE HYDROCHLORIDE
     Indication: PRODUCT USED FOR UNKNOWN INDICATION
     Dosage: UNK
     Route: 048

REACTIONS (10)
  - Abdominal distension [Unknown]
  - Inflammatory bowel disease [Unknown]
  - Drug dependence [Unknown]
  - Urinary retention [Unknown]
  - Diarrhoea infectious [Unknown]
  - Abdominal pain upper [Unknown]
  - Body mass index abnormal [Unknown]
  - Respiratory disorder [Unknown]
  - Gastrointestinal motility disorder [Unknown]
  - Death [Fatal]

NARRATIVE: CASE EVENT DATE: 20180618
